FAERS Safety Report 24942235 (Version 1)
Quarter: 2025Q1

REPORT INFORMATION
  Report Type: Report from Study
  Country: CA (occurrence: CA)
  Receive Date: 20250207
  Receipt Date: 20250207
  Transmission Date: 20250409
  Serious: Yes (Hospitalization)
  Sender: SAMSUNG BIOEPIS
  Company Number: CA-SAMSUNG BIOEPIS-SB-2025-04449

PATIENT
  Age: 56 Year
  Sex: Male
  Weight: 65 kg

DRUGS (1)
  1. RENFLEXIS [Suspect]
     Active Substance: INFLIXIMAB-ABDA
     Indication: Behcet^s syndrome
     Dosage: 100 MG/ VIAL; PERFUSE ON WEEK 0.2 AND 6;
     Route: 042
     Dates: start: 20250120

REACTIONS (4)
  - Pneumonia aspiration [Not Recovered/Not Resolved]
  - Fatigue [Unknown]
  - Vomiting [Unknown]
  - Off label use [Unknown]

NARRATIVE: CASE EVENT DATE: 20250121
